FAERS Safety Report 13547262 (Version 3)
Quarter: 2017Q2

REPORT INFORMATION
  Report Type: Report from Study
  Country: US (occurrence: US)
  Receive Date: 20170515
  Receipt Date: 20170607
  Transmission Date: 20170830
  Serious: Yes (Hospitalization)
  Sender: FDA-Public Use
  Company Number: US-ACTELION-A-US2017-153674

PATIENT
  Age: 12 Month
  Sex: Female

DRUGS (6)
  1. SILDENAFIL. [Concomitant]
     Active Substance: SILDENAFIL
     Dosage: UNK, TID
  2. DIURIL [Concomitant]
     Active Substance: CHLOROTHIAZIDE
     Dosage: UNK, Q6HRS
     Dates: start: 20170501
  3. REMODULIN [Suspect]
     Active Substance: TREPROSTINIL
     Indication: PRODUCT USED FOR UNKNOWN INDICATION
     Dosage: 33 NG/KG, PER MIN
     Route: 058
     Dates: start: 20170501
  4. TRACLEER [Suspect]
     Active Substance: BOSENTAN
     Indication: PULMONARY ARTERIAL HYPERTENSION
     Dosage: 13.75 MG, BID
     Route: 048
  5. ALDACTONE [Concomitant]
     Active Substance: SPIRONOLACTONE
     Dosage: 3 MG, BID
  6. ZAROXOLYN [Concomitant]
     Active Substance: METOLAZONE
     Dosage: 1.4 MG, UNK
     Dates: start: 20170501

REACTIONS (6)
  - Catheter site abscess [Recovered/Resolved]
  - Catheter placement [Unknown]
  - Pyrexia [Unknown]
  - Cellulitis staphylococcal [Recovered/Resolved]
  - Respiratory distress [Unknown]
  - Seizure [Unknown]
